FAERS Safety Report 6949825-9 (Version None)
Quarter: 2010Q3

REPORT INFORMATION
  Report Type: 
  Country: None (occurrence: None)
  Receive Date: 20100828
  Receipt Date: 20100112
  Transmission Date: 20110219
  Serious: No
  Sender: FDA-Public Use
  Company Number: US-ABBOTT-10P-163-0619685-00

PATIENT
  Sex: Male
  Weight: 103.51 kg

DRUGS (5)
  1. NIASPAN [Suspect]
     Indication: BLOOD CHOLESTEROL INCREASED
     Dates: start: 20091222
  2. ACTOS [Concomitant]
     Indication: DIABETES MELLITUS
  3. GLUCOTROL XL [Concomitant]
     Indication: DIABETES MELLITUS
  4. ENTERIC ASPIRIN [Concomitant]
     Indication: PROPHYLAXIS
     Dates: start: 20091201
  5. RAMIPRIL [Concomitant]
     Indication: HYPERTENSION

REACTIONS (2)
  - BLOOD GLUCOSE INCREASED [None]
  - BLOOD PRESSURE INCREASED [None]
